FAERS Safety Report 23186246 (Version 1)
Quarter: 2023Q4

REPORT INFORMATION
  Report Type: Spontaneous
  Country: CN (occurrence: CN)
  Receive Date: 20231115
  Receipt Date: 20231115
  Transmission Date: 20240109
  Serious: Yes (Other)
  Sender: FDA-Public Use
  Company Number: CN-009507513-2311CHN002854

PATIENT
  Age: 55 Year
  Sex: Male
  Weight: 59.5 kg

DRUGS (5)
  1. CILASTATIN SODIUM\IMIPENEM [Suspect]
     Active Substance: CILASTATIN SODIUM\IMIPENEM
     Indication: Pneumonia
     Dosage: 1 G, Q8H, IV DRIP
     Route: 041
     Dates: start: 20231008, end: 20231023
  2. AMPHOTERICIN B [Suspect]
     Active Substance: AMPHOTERICIN B
     Indication: Pneumonia
     Dosage: 5 MG, QD, IV DRIP
     Route: 041
     Dates: start: 20231008, end: 20231013
  3. AMPHOTERICIN B [Suspect]
     Active Substance: AMPHOTERICIN B
     Dosage: 30 MG, QD, IV DRIP
     Route: 041
     Dates: start: 20231014, end: 20231017
  4. AMPHOTERICIN B [Suspect]
     Active Substance: AMPHOTERICIN B
     Dosage: 35 MG, QD, IV DRIP
     Route: 041
     Dates: start: 20231018, end: 20231020
  5. NORVANCOMYCIN HYDROCHLORIDE [Suspect]
     Active Substance: NORVANCOMYCIN HYDROCHLORIDE
     Indication: Pneumonia
     Dosage: 0.8 G, Q12H, IV DRIP
     Route: 041
     Dates: start: 20231017, end: 20231020

REACTIONS (2)
  - Renal injury [Unknown]
  - Drug ineffective [Unknown]

NARRATIVE: CASE EVENT DATE: 20231020
